FAERS Safety Report 16211424 (Version 1)
Quarter: 2019Q2

REPORT INFORMATION
  Report Type: Spontaneous
  Country: KR (occurrence: KR)
  Receive Date: 20190418
  Receipt Date: 20190418
  Transmission Date: 20190711
  Serious: Yes (Hospitalization, Other)
  Sender: FDA-Public Use
  Company Number: KR-009507513-1904KOR004346

PATIENT
  Age: 25 Year
  Sex: Male
  Weight: 81 kg

DRUGS (7)
  1. REMIFENTANIL HYDROCHLORIDE. [Suspect]
     Active Substance: REMIFENTANIL HYDROCHLORIDE
     Dosage: 0.2 MCG/KG/MIN
  2. REMIFENTANIL HYDROCHLORIDE. [Suspect]
     Active Substance: REMIFENTANIL HYDROCHLORIDE
     Dosage: 30 MICROGRAM (0.37 MCG/KG)
  3. LIDOCAINE. [Concomitant]
     Active Substance: LIDOCAINE
     Dosage: 40 MILLIGRAM
  4. SUGAMMADEX SODIUM [Suspect]
     Active Substance: SUGAMMADEX SODIUM
     Dosage: 200 MG (2.5 MILLIGRAM/KILOGRAM)
  5. PROPOFOL. [Concomitant]
     Active Substance: PROPOFOL
     Dosage: 2 MILLIGRAM/KILOGRAM, TOTAL 160MG
  6. REMIFENTANIL HYDROCHLORIDE. [Suspect]
     Active Substance: REMIFENTANIL HYDROCHLORIDE
     Dosage: 0.06 MCG/KG/MIN
  7. ROCURONIUM BROMIDE. [Concomitant]
     Active Substance: ROCURONIUM BROMIDE
     Dosage: 0.625 MG/KG

REACTIONS (2)
  - Pulmonary alveolar haemorrhage [Recovered/Resolved]
  - Negative pressure pulmonary oedema [Recovered/Resolved]
